FAERS Safety Report 8216344-1 (Version None)
Quarter: 2012Q1

REPORT INFORMATION
  Report Type: 
  Country: None (occurrence: None)
  Receive Date: 20120316
  Receipt Date: 20120309
  Transmission Date: 20120608
  Serious: Yes (Death, Hospitalization, Other)
  Sender: FDA-Public Use
  Company Number: PHHY2010JP72877

PATIENT
  Age: 69 Year
  Sex: Female

DRUGS (5)
  1. STEROIDS NOS [Concomitant]
     Indication: RENAL TRANSPLANT
     Dosage: 15 MG DAILY
     Route: 048
     Dates: start: 20081101
  2. NEORAL [Suspect]
     Indication: RENAL TRANSPLANT
     Dosage: 250 MG, UNK
     Route: 048
     Dates: start: 20081101
  3. MYCOPHENOLATE MOFETIL (CELLCEPT) [Suspect]
     Indication: RENAL TRANSPLANT
     Dosage: 1 GM DAILY
     Route: 048
     Dates: start: 20081101
  4. ADRENAL HORMONE PREPARATIONS [Concomitant]
  5. SIMULECT [Suspect]
     Indication: RENAL TRANSPLANT
     Dosage: 20 MG
     Route: 042
     Dates: start: 20081101, end: 20081101

REACTIONS (10)
  - ORAL DISORDER [None]
  - KIDNEY TRANSPLANT REJECTION [None]
  - RENAL IMPAIRMENT [None]
  - ORAL CANDIDIASIS [None]
  - ACUTE RESPIRATORY DISTRESS SYNDROME [None]
  - DERMATITIS BULLOUS [None]
  - PNEUMONIA HERPES VIRAL [None]
  - INFECTION [None]
  - RESPIRATORY FAILURE [None]
  - VASCULITIS [None]
